FAERS Safety Report 8012268-3 (Version None)
Quarter: 2011Q4

REPORT INFORMATION
  Report Type: 
  Country: None (occurrence: None)
  Receive Date: 20111228
  Receipt Date: 20111220
  Transmission Date: 20120403
  Serious: Yes (Other)
  Sender: FDA-Public Use
  Company Number: GR-ELI_LILLY_AND_COMPANY-GR201112006370

PATIENT
  Age: 41 Year
  Sex: Male
  Weight: 80 kg

DRUGS (8)
  1. EFFIENT [Suspect]
     Indication: ACUTE CORONARY SYNDROME
     Dosage: 10 MG, QD
     Route: 048
     Dates: start: 20110113
  2. OMEPRAZOLE [Concomitant]
     Indication: ACUTE CORONARY SYNDROME
     Dosage: 20 MG, QD
     Route: 048
     Dates: start: 20110113
  3. ZESTRIL [Concomitant]
     Indication: ACUTE CORONARY SYNDROME
     Dosage: 5 MG, QD
     Route: 048
     Dates: start: 20110113
  4. CARVEDILOL [Concomitant]
     Indication: ACUTE CORONARY SYNDROME
     Dosage: 25 MG, QD
     Route: 048
     Dates: start: 20110113
  5. ALDACTONE [Concomitant]
     Indication: ACUTE CORONARY SYNDROME
     Dosage: 25 MG, QD
     Route: 048
     Dates: start: 20110113
  6. LASIX [Concomitant]
     Indication: ACUTE CORONARY SYNDROME
     Dosage: 40 MG, QD
     Route: 048
     Dates: start: 20110113
  7. ATORVASTATIN [Concomitant]
     Indication: ACUTE CORONARY SYNDROME
     Dosage: 20 MG, QD
     Route: 048
     Dates: start: 20110113
  8. SALOSPIR [Concomitant]
     Indication: ACUTE CORONARY SYNDROME
     Dosage: 100 MG, QD
     Route: 048
     Dates: start: 20110113

REACTIONS (1)
  - BLOOD BILIRUBIN INCREASED [None]
